FAERS Safety Report 13002253 (Version 1)
Quarter: 2016Q4

REPORT INFORMATION
  Report Type: Spontaneous
  Country: FR (occurrence: FR)
  Receive Date: 20161206
  Receipt Date: 20161206
  Transmission Date: 20170207
  Serious: Yes (Life-Threatening, Hospitalization, Other)
  Sender: FDA-Public Use
  Company Number: FR-BRISTOL-MYERS SQUIBB COMPANY-BMS-2016-099759

PATIENT
  Age: 36 Year
  Sex: Male

DRUGS (6)
  1. ENDOXAN                            /00021101/ [Suspect]
     Active Substance: CYCLOPHOSPHAMIDE
     Indication: TRANSPLANT
     Dosage: 3000 MG, QD
     Route: 042
     Dates: start: 20161104, end: 20161107
  2. BICNU [Suspect]
     Active Substance: CARMUSTINE
     Indication: TRANSPLANT
     Dosage: 600 MG, UNK
     Route: 042
     Dates: start: 20161104, end: 20161107
  3. ETOPOSIDE MYLAN [Suspect]
     Active Substance: ETOPOSIDE
     Indication: PRODUCT USED FOR UNKNOWN INDICATION
     Dosage: 200 MG, BID
     Route: 042
     Dates: start: 20161107
  4. ETOPOPHOS [Suspect]
     Active Substance: ETOPOSIDE PHOSPHATE
     Indication: TRANSPLANT
     Dosage: 200 MG, BID
     Route: 042
     Dates: start: 20161105, end: 20161106
  5. ETOPOSIDE MYLAN [Suspect]
     Active Substance: ETOPOSIDE
     Indication: TRANSPLANT
     Dosage: 200 MG, BID
     Route: 042
     Dates: start: 20161104
  6. CYTARABINE KABI [Suspect]
     Active Substance: CYTARABINE
     Indication: TRANSPLANT
     Dosage: 800 MG, QD
     Route: 042
     Dates: start: 20061104, end: 20161107

REACTIONS (3)
  - Pulmonary toxicity [Recovering/Resolving]
  - Endotracheal intubation [Unknown]
  - Cardiotoxicity [Recovering/Resolving]

NARRATIVE: CASE EVENT DATE: 20161109
